FAERS Safety Report 24214252 (Version 1)
Quarter: 2024Q3

REPORT INFORMATION
  Report Type: Spontaneous
  Country: US (occurrence: US)
  Receive Date: 20240815
  Receipt Date: 20240815
  Transmission Date: 20241017
  Serious: No
  Sender: GE HEALTHCARE
  Company Number: US-GE HEALTHCARE-2024CSU005566

PATIENT
  Age: 22 Year
  Sex: Male
  Weight: 60.771 kg

DRUGS (3)
  1. OMNIPAQUE [Suspect]
     Active Substance: IOHEXOL
     Indication: Diagnostic procedure
     Dosage: 90 ML, TOTAL
     Route: 042
     Dates: start: 20240503, end: 20240503
  2. ASPIRIN [Concomitant]
     Active Substance: ASPIRIN
     Dosage: UNK UNKNOWN
     Route: 065
  3. LISINOPRIL [Concomitant]
     Active Substance: LISINOPRIL
     Dosage: UNK UNKNOWN
     Route: 065

REACTIONS (1)
  - Urticaria [Recovered/Resolved]

NARRATIVE: CASE EVENT DATE: 20240503
